FAERS Safety Report 16770365 (Version 1)
Quarter: 2019Q3

REPORT INFORMATION
  Report Type: Spontaneous
  Country: LY (occurrence: LY)
  Receive Date: 20190904
  Receipt Date: 20190904
  Transmission Date: 20191005
  Serious: Yes (Hospitalization)
  Sender: FDA-Public Use
  Company Number: LY-BIOVITRUM-2019LY2760

PATIENT
  Sex: Male

DRUGS (2)
  1. ORFADIN [Suspect]
     Active Substance: NITISINONE
     Route: 065
  2. ORFADIN [Suspect]
     Active Substance: NITISINONE
     Dosage: 20 CAPSULES AT ONE TIME
     Route: 065

REACTIONS (1)
  - Accidental overdose [Unknown]
